FAERS Safety Report 8220412-8 (Version None)
Quarter: 2012Q1

REPORT INFORMATION
  Report Type: 
  Country: None (occurrence: None)
  Receive Date: 20120314
  Receipt Date: 20120305
  Transmission Date: 20120608
  Serious: Yes (Other)
  Sender: FDA-Public Use
  Company Number: 2011SP042958

PATIENT
  Age: 40 Year
  Sex: Female

DRUGS (17)
  1. LAMICTAL [Concomitant]
  2. ARMOR THYROID [Concomitant]
  3. MIDRIN [Concomitant]
  4. CLONAZEPAM [Concomitant]
  5. LORAZEPAM [Concomitant]
  6. GLIPIZIDE [Concomitant]
  7. SEROQUEL [Concomitant]
  8. LAMICTAL [Concomitant]
  9. SAPHRIS [Suspect]
     Indication: OBSESSIVE THOUGHTS
     Dosage: 5 MG;HS;PO 10 MG;HS; 20 MG;HS; 10 MG;HS;
     Route: 048
     Dates: start: 20111026
  10. SAPHRIS [Suspect]
     Indication: BIPOLAR I DISORDER
     Dosage: 5 MG;HS;PO 10 MG;HS; 20 MG;HS; 10 MG;HS;
     Route: 048
     Dates: start: 20111026
  11. SAPHRIS [Suspect]
     Indication: OBSESSIVE THOUGHTS
     Dosage: 5 MG;HS;PO 10 MG;HS; 20 MG;HS; 10 MG;HS;
     Route: 048
     Dates: start: 20111121, end: 20111121
  12. SAPHRIS [Suspect]
     Indication: BIPOLAR I DISORDER
     Dosage: 5 MG;HS;PO 10 MG;HS; 20 MG;HS; 10 MG;HS;
     Route: 048
     Dates: start: 20111121, end: 20111121
  13. TEMAZEPAM [Concomitant]
  14. ALLEGRA [Concomitant]
  15. PRADAXA [Concomitant]
  16. METFORMIN HCL [Concomitant]
  17. SIMVASTATIN [Concomitant]

REACTIONS (10)
  - MUSCLE SPASMS [None]
  - PYREXIA [None]
  - FEELING ABNORMAL [None]
  - MEMORY IMPAIRMENT [None]
  - DIARRHOEA [None]
  - INSOMNIA [None]
  - ANAPHYLACTIC REACTION [None]
  - TREMOR [None]
  - COGNITIVE DISORDER [None]
  - HEADACHE [None]
